FAERS Safety Report 12159739 (Version 1)
Quarter: 2016Q1

REPORT INFORMATION
  Report Type: Spontaneous
  Country: TR (occurrence: TR)
  Receive Date: 20160308
  Receipt Date: 20160308
  Transmission Date: 20160526
  Serious: Yes (Hospitalization)
  Sender: FDA-Public Use
  Company Number: PHHY2016TR028479

PATIENT
  Age: 84 Year
  Sex: Female

DRUGS (5)
  1. RIVASTIGMINE. [Suspect]
     Active Substance: RIVASTIGMINE
     Indication: HYPERLIPIDAEMIA
     Route: 065
  2. PIRACETAM [Suspect]
     Active Substance: PIRACETAM
     Indication: HYPERLIPIDAEMIA
     Route: 065
  3. ATORVASTATIN CALCIUM. [Suspect]
     Active Substance: ATORVASTATIN CALCIUM
     Indication: HYPERLIPIDAEMIA
     Route: 065
  4. DILTIAZEM [Suspect]
     Active Substance: DILTIAZEM
     Indication: HYPERLIPIDAEMIA
     Route: 065
  5. QUETIAPINE [Suspect]
     Active Substance: QUETIAPINE
     Indication: HYPERLIPIDAEMIA
     Route: 065

REACTIONS (3)
  - Respiratory distress [Unknown]
  - Dizziness [Unknown]
  - Bradycardia [Recovered/Resolved]
